FAERS Safety Report 4975518-3 (Version None)
Quarter: 2006Q2

REPORT INFORMATION
  Report Type: 
  Country: None (occurrence: None)
  Receive Date: 20060417
  Receipt Date: 20060417
  Transmission Date: 20061013
  Serious: Yes (Death)
  Sender: FDA-Public Use
  Company Number: None

PATIENT
  Sex: Male
  Weight: 115.7 kg

DRUGS (11)
  1. CISPLATIN [Suspect]
     Indication: OESOPHAGEAL ADENOCARCINOMA
     Dosage: 210 MG
     Dates: start: 20031106, end: 20031120
  2. TAXOL [Suspect]
     Dates: start: 20031106, end: 20031215
  3. DOPAMINE [Concomitant]
  4. ASPIRIN [Concomitant]
  5. HYDROCHLOROTHIAZIDE [Concomitant]
  6. HEPARIN [Concomitant]
  7. IMDUR [Concomitant]
  8. LIPITOR [Concomitant]
  9. METOPROLOL TARTRATE [Concomitant]
  10. SYNTHROID [Concomitant]
  11. ZANTAC [Concomitant]

REACTIONS (9)
  - ACUTE MYOCARDIAL INFARCTION [None]
  - BRADYCARDIA [None]
  - HEART RATE INCREASED [None]
  - HYPOTENSION [None]
  - LOBAR PNEUMONIA [None]
  - METABOLIC ACIDOSIS [None]
  - RENAL FAILURE ACUTE [None]
  - SINUS ARREST [None]
  - TREATMENT NONCOMPLIANCE [None]
